FAERS Safety Report 21000880 (Version 1)
Quarter: 2022Q2

REPORT INFORMATION
  Report Type: Spontaneous
  Country: US (occurrence: US)
  Receive Date: 20220624
  Receipt Date: 20220624
  Transmission Date: 20220721
  Serious: Yes (Other)
  Sender: FDA-Public Use
  Company Number: US-JNJFOC-20220638565

PATIENT
  Sex: Female

DRUGS (1)
  1. LISTERINE ORIGINAL [Suspect]
     Active Substance: EUCALYPTOL\MENTHOL\METHYL SALICYLATE\THYMOL
     Indication: Dental disorder prophylaxis
     Route: 048
     Dates: start: 20220602

REACTIONS (3)
  - Hallucination, visual [Unknown]
  - Drug abuse [Unknown]
  - Abdominal pain upper [Unknown]
